FAERS Safety Report 24325103 (Version 1)
Quarter: 2024Q3

REPORT INFORMATION
  Report Type: Spontaneous
  Country: US (occurrence: US)
  Receive Date: 20240916
  Receipt Date: 20240916
  Transmission Date: 20241017
  Serious: No
  Sender: BRAINTREE
  Company Number: US-BRAINTREE LABORATORIES, INC.-2024BTE00247

PATIENT
  Sex: Female

DRUGS (1)
  1. SUPREP BOWEL PREP [Suspect]
     Active Substance: MAGNESIUM SULFATE\POTASSIUM SULFATE\SODIUM SULFATE
     Indication: Colonic lavage
     Dosage: 1 X 6 OZ. BOTTLE, 1X

REACTIONS (3)
  - Abdominal pain upper [Unknown]
  - Unevaluable event [Unknown]
  - Off label use [Recovered/Resolved]
